FAERS Safety Report 15248077 (Version 1)
Quarter: 2018Q3

REPORT INFORMATION
  Report Type: Spontaneous
  Country: US (occurrence: US)
  Receive Date: 20180714
  Receipt Date: 20180714
  Transmission Date: 20181010
  Serious: Yes (Other)
  Sender: FDA-Public Use
  Company Number: None

PATIENT
  Age: 62 Year
  Sex: Female

DRUGS (5)
  1. WELCHOL [Suspect]
     Active Substance: COLESEVELAM HYDROCHLORIDE
     Indication: BLOOD CHOLESTEROL INCREASED
     Dosage: ?          QUANTITY:120 DF DOSAGE FORM;?
     Route: 048
     Dates: start: 20180709, end: 20180710
  2. ENALAP/HCTZ [Concomitant]
  3. MAGNESIUM [Concomitant]
     Active Substance: MAGNESIUM
  4. COQ10 [Concomitant]
     Active Substance: UBIDECARENONE
  5. POTASSIUM [Concomitant]
     Active Substance: POTASSIUM

REACTIONS (6)
  - Chromaturia [None]
  - Gait disturbance [None]
  - Renal pain [None]
  - Muscle spasms [None]
  - Skin mass [None]
  - Myalgia [None]

NARRATIVE: CASE EVENT DATE: 20180710
